FAERS Safety Report 6910762-7 (Version None)
Quarter: 2010Q3

REPORT INFORMATION
  Report Type: 
  Country: None (occurrence: None)
  Receive Date: 20100806
  Receipt Date: 20100730
  Transmission Date: 20110219
  Serious: Yes (Other)
  Sender: FDA-Public Use
  Company Number: GB-B.I. PHARMACEUTICALS,INC./RIDGEFIELD-2010-UK-00663UK

PATIENT
  Age: 83 Year
  Sex: Male

DRUGS (5)
  1. TAMSULOSIN HCL [Suspect]
  2. FINASTERIDE [Suspect]
  3. LANSOPRAZOLE [Suspect]
  4. ASPIRIN [Suspect]
  5. CARBIMAZOLE [Suspect]
     Indication: HYPERTHYROIDISM

REACTIONS (3)
  - FATIGUE [None]
  - GYNAECOMASTIA [None]
  - HYPERTHYROIDISM [None]
